FAERS Safety Report 18957751 (Version 1)
Quarter: 2021Q1

REPORT INFORMATION
  Report Type: Spontaneous
  Country: US (occurrence: US)
  Receive Date: 20210302
  Receipt Date: 20210302
  Transmission Date: 20210420
  Serious: Yes (Other)
  Sender: FDA-Public Use
  Company Number: US-GW PHARMA-202102USGW00669

PATIENT

DRUGS (1)
  1. EPIDIOLEX [Suspect]
     Active Substance: CANNABIDIOL
     Indication: LENNOX-GASTAUT SYNDROME
     Dosage: 18.9 MG/KG/DAY, 180 MILLIGRAM, BID
     Route: 048
     Dates: start: 20201223

REACTIONS (2)
  - Insomnia [Unknown]
  - Decreased appetite [Unknown]
